FAERS Safety Report 18703664 (Version 6)
Quarter: 2023Q4

REPORT INFORMATION
  Report Type: Spontaneous
  Country: KR (occurrence: KR)
  Receive Date: 20210105
  Receipt Date: 20231122
  Transmission Date: 20240109
  Serious: Yes (Other)
  Sender: FDA-Public Use
  Company Number: KR-AMERICAN REGENT INC-2020002767

PATIENT
  Age: 43 Year
  Sex: Female

DRUGS (2)
  1. FERINJECT [Suspect]
     Active Substance: FERRIC CARBOXYMALTOSE
     Indication: Haemoglobin decreased
     Dosage: 500 MG,1 IN 1 D
     Route: 042
     Dates: start: 20190709, end: 20190709
  2. XOLAIR [Concomitant]
     Active Substance: OMALIZUMAB
     Indication: Sinusitis
     Dosage: 1 IN 1 M
     Route: 042

REACTIONS (19)
  - Loss of consciousness [Unknown]
  - Bronchospasm [Unknown]
  - Herpes virus infection [Unknown]
  - Fractured coccyx [Unknown]
  - Syncope [Unknown]
  - Angioedema [Unknown]
  - Vasculitis [Not Recovered/Not Resolved]
  - Anxiety [Unknown]
  - Pain [Unknown]
  - Skin discolouration [Not Recovered/Not Resolved]
  - Blister [Not Recovered/Not Resolved]
  - Thyroiditis [Recovered/Resolved]
  - COVID-19 [Unknown]
  - Pain in extremity [Unknown]
  - Dry eye [Unknown]
  - Hyperkeratosis [Unknown]
  - Hypersensitivity [Not Recovered/Not Resolved]
  - Rash [Unknown]
  - Pyrexia [Recovered/Resolved]

NARRATIVE: CASE EVENT DATE: 20190101
